FAERS Safety Report 7338831-0 (Version None)
Quarter: 2011Q1

REPORT INFORMATION
  Report Type: 
  Country: None (occurrence: None)
  Receive Date: 20110308
  Receipt Date: 20110225
  Transmission Date: 20110831
  Serious: Yes (Other)
  Sender: FDA-Public Use
  Company Number: PHHY2008JP09887

PATIENT
  Age: 59 Year
  Sex: Female

DRUGS (1)
  1. DICLOFENAC SODIUM [Suspect]
     Indication: ABDOMINAL PAIN
     Route: 065

REACTIONS (4)
  - IRON DEFICIENCY ANAEMIA [None]
  - JEJUNAL ULCER [None]
  - MELAENA [None]
  - JEJUNAL STENOSIS [None]
